FAERS Safety Report 9057476 (Version 2)
Quarter: 2013Q1

REPORT INFORMATION
  Report Type: Spontaneous
  Country: US (occurrence: US)
  Receive Date: 20130204
  Receipt Date: 20130226
  Transmission Date: 20140127
  Serious: Yes (Death)
  Sender: FDA-Public Use
  Company Number: US-ASTRAZENECA-2013SE07441

PATIENT
  Age: 511 Day
  Sex: Male

DRUGS (5)
  1. SYNAGIS [Suspect]
     Indication: TRUNCUS ARTERIOSUS PERSISTENT
     Dosage: 50 MG/0.5ML / 15 MG/KG ONCE A MONTH
     Route: 030
     Dates: start: 20121102, end: 201301
  2. SYNAGIS [Suspect]
     Indication: RESPIRATORY DISORDER
     Dosage: 50 MG/0.5ML / 15 MG/KG ONCE A MONTH
     Route: 030
     Dates: start: 20121102, end: 201301
  3. SYNAGIS [Suspect]
     Indication: EMPYEMA
     Dosage: 50 MG/0.5ML / 15 MG/KG ONCE A MONTH
     Route: 030
     Dates: start: 20121102, end: 201301
  4. HEART RELATED MEDICATIONS [Concomitant]
  5. BLOOD THINNER [Concomitant]

REACTIONS (1)
  - Death [Fatal]
